FAERS Safety Report 5057233-3 (Version None)
Quarter: 2006Q3

REPORT INFORMATION
  Report Type: 
  Country: None (occurrence: None)
  Receive Date: 20060721
  Receipt Date: 20050621
  Transmission Date: 20061208
  Serious: No
  Sender: FDA-Public Use
  Company Number: US-GLAXOSMITHKLINE-A0563605A

PATIENT
  Age: 57 Year
  Sex: Female

DRUGS (8)
  1. AVANDIA [Suspect]
     Dosage: 4MG TWICE PER DAY
     Route: 048
     Dates: start: 20040601
  2. PREMARIN [Concomitant]
  3. HYDROCHLOROTHIAZIDE [Concomitant]
  4. AMARYL [Concomitant]
  5. ACIPHEX [Concomitant]
  6. THYROID TAB [Concomitant]
  7. LOTREL [Concomitant]
  8. METFORMIN [Concomitant]

REACTIONS (1)
  - DRUG INEFFECTIVE [None]
